FAERS Safety Report 9761166 (Version 2)
Quarter: 2014Q1

REPORT INFORMATION
  Report Type: Spontaneous
  Country: US (occurrence: US)
  Receive Date: 20131216
  Receipt Date: 20140121
  Transmission Date: 20141002
  Serious: Yes (Other)
  Sender: FDA-Public Use
  Company Number: US-PFIZER INC-2013359163

PATIENT
  Sex: Male

DRUGS (6)
  1. QUILLIVANT XR [Suspect]
     Indication: ATTENTION DEFICIT/HYPERACTIVITY DISORDER
     Dosage: 3 MG, UNK
     Dates: start: 20131128, end: 2013
  2. QUILLIVANT XR [Suspect]
     Dosage: 4 MG, UNK
     Dates: start: 2013, end: 2013
  3. QUILLIVANT XR [Suspect]
     Dosage: 5 MG, UNK
     Dates: start: 20131209, end: 201312
  4. VYVANSE [Concomitant]
     Indication: ATTENTION DEFICIT/HYPERACTIVITY DISORDER
     Dosage: UNK
  5. ABILIFY [Concomitant]
     Dosage: UNK
  6. OMNICEF [Concomitant]
     Dosage: UNK

REACTIONS (10)
  - Overdose [Unknown]
  - Haematochezia [Unknown]
  - Product reconstitution issue [Unknown]
  - Somnolence [Unknown]
  - Eye pain [Unknown]
  - Headache [Unknown]
  - Abdominal pain upper [Unknown]
  - Emotional disorder [Unknown]
  - Agitation [Unknown]
  - Dizziness [Unknown]
